FAERS Safety Report 15533861 (Version 1)
Quarter: 2018Q4

REPORT INFORMATION
  Report Type: Spontaneous
  Country: MX (occurrence: MX)
  Receive Date: 20181019
  Receipt Date: 20181019
  Transmission Date: 20190205
  Serious: Yes (Other)
  Sender: FDA-Public Use
  Company Number: MX-BAYER-2018-189734

PATIENT
  Age: 32 Year
  Sex: Female

DRUGS (1)
  1. QLAIRA [Suspect]
     Active Substance: DIENOGEST\ESTRADIOL VALERATE
     Route: 048

REACTIONS (6)
  - Salmonellosis [None]
  - Vaginal discharge [None]
  - Vulvovaginal erythema [None]
  - Vulvovaginal pruritus [None]
  - Vulvovaginal burning sensation [None]
  - Adverse event [None]
